FAERS Safety Report 16863074 (Version 1)
Quarter: 2019Q3

REPORT INFORMATION
  Report Type: Spontaneous
  Country: US (occurrence: US)
  Receive Date: 20190927
  Receipt Date: 20190927
  Transmission Date: 20191005
  Serious: No
  Sender: FDA-Public Use
  Company Number: US-BAYER-2019-174461

PATIENT
  Age: 74 Year
  Sex: Male
  Weight: 73 kg

DRUGS (3)
  1. CLARITIN [Suspect]
     Active Substance: LORATADINE
     Indication: DIARRHOEA
     Dosage: 5 DF
     Route: 048
     Dates: start: 20190923
  2. IMODIUM [Concomitant]
     Active Substance: LOPERAMIDE HYDROCHLORIDE
     Dosage: UNK
  3. NORCO [Concomitant]
     Active Substance: ACETAMINOPHEN\HYDROCODONE BITARTRATE
     Dosage: UNK

REACTIONS (2)
  - Wrong product administered [Unknown]
  - Extra dose administered [Recovered/Resolved]

NARRATIVE: CASE EVENT DATE: 20190923
